FAERS Safety Report 23368094 (Version 1)
Quarter: 2024Q1

REPORT INFORMATION
  Report Type: Spontaneous
  Country: US (occurrence: US)
  Receive Date: 20240105
  Receipt Date: 20240105
  Transmission Date: 20240409
  Serious: Yes (Hospitalization, Other)
  Sender: FDA-Public Use
  Company Number: US-BoehringerIngelheim-2023-BI-280354

PATIENT
  Age: 67 Year
  Sex: Female

DRUGS (3)
  1. EMPAGLIFLOZIN [Suspect]
     Active Substance: EMPAGLIFLOZIN
     Indication: Type 2 diabetes mellitus
     Dosage: DAILY DOSE: 25 MILLIGRAM(S)
  2. APIXABAN [Concomitant]
     Active Substance: APIXABAN
     Indication: Atrial fibrillation
  3. ATENOLOL [Concomitant]
     Active Substance: ATENOLOL
     Indication: Product used for unknown indication

REACTIONS (9)
  - Pancreatitis acute [Unknown]
  - Euglycaemic diabetic ketoacidosis [Recovered/Resolved]
  - Pancreatitis necrotising [Unknown]
  - Systemic inflammatory response syndrome [Unknown]
  - Peripancreatic fluid collection [Unknown]
  - Pancreatic steatosis [Unknown]
  - Mental status changes [Unknown]
  - Pancreatic phlegmon [Unknown]
  - Pancreatic haemorrhage [Unknown]
